FAERS Safety Report 15357543 (Version 1)
Quarter: 2018Q3

REPORT INFORMATION
  Report Type: Spontaneous
  Country: US (occurrence: US)
  Receive Date: 20180830
  Receipt Date: 20180830
  Transmission Date: 20181010
  Serious: Yes (Death)
  Sender: FDA-Public Use
  Company Number: None

PATIENT
  Age: 58 Year
  Sex: Male
  Weight: 69.85 kg

DRUGS (11)
  1. MEKINIST [Suspect]
     Active Substance: TRAMETINIB DIMETHYL SULFOXIDE
     Indication: MALIGNANT MELANOMA
     Route: 048
     Dates: start: 20180605
  2. LISINOPRIL. [Concomitant]
     Active Substance: LISINOPRIL
  3. PAXIL [Concomitant]
     Active Substance: PAROXETINE HYDROCHLORIDE
  4. SYNTHROID [Concomitant]
     Active Substance: LEVOTHYROXINE SODIUM
  5. LANTUS [Concomitant]
     Active Substance: INSULIN GLARGINE
  6. KEPPRA [Concomitant]
     Active Substance: LEVETIRACETAM
  7. DURAGESIC [Concomitant]
     Active Substance: FENTANYL
  8. TAFINLAR [Concomitant]
     Active Substance: DABRAFENIB MESYLATE
  9. XANAX [Concomitant]
     Active Substance: ALPRAZOLAM
  10. FAMOTIDINE. [Concomitant]
     Active Substance: FAMOTIDINE
  11. DEXAMETHASONE. [Concomitant]
     Active Substance: DEXAMETHASONE

REACTIONS (1)
  - Death [None]
